FAERS Safety Report 5260809-1 (Version None)
Quarter: 2007Q2

REPORT INFORMATION
  Report Type: 
  Country: None (occurrence: None)
  Receive Date: 20070309
  Receipt Date: 20070226
  Transmission Date: 20071010
  Serious: Yes (Hospitalization)
  Sender: FDA-Public Use
  Company Number: DE-JNJFOC-20070204901

PATIENT
  Sex: Male
  Weight: 86 kg

DRUGS (7)
  1. REMINYL [Suspect]
     Indication: ABNORMAL BEHAVIOUR
     Route: 048
  2. REMINYL [Suspect]
     Indication: DEMENTIA ALZHEIMER'S TYPE
     Route: 048
  3. RISPERDAL [Suspect]
     Indication: ABNORMAL BEHAVIOUR
     Route: 048
  4. RISPERDAL [Suspect]
     Indication: DEMENTIA ALZHEIMER'S TYPE
     Route: 048
  5. CAPTOHEXAL COMP [Concomitant]
     Indication: CARDIAC FAILURE
     Route: 048
  6. METOPROLOL SUCCINATE [Concomitant]
     Indication: ARRHYTHMIA
     Route: 048
  7. UNAT [Concomitant]
     Indication: RENAL FAILURE
     Route: 048

REACTIONS (1)
  - RENAL FAILURE [None]
